FAERS Safety Report 4752551-8 (Version None)
Quarter: 2005Q3

REPORT INFORMATION
  Report Type: 
  Country: None (occurrence: None)
  Receive Date: 20050823
  Receipt Date: 20050809
  Transmission Date: 20060218
  Serious: Yes (Hospitalization)
  Sender: FDA-Public Use
  Company Number: 2005-07-0114

PATIENT
  Age: 78 Year
  Sex: Male
  Weight: 64 kg

DRUGS (11)
  1. CLARITIN REDITABS [Suspect]
     Indication: PRURITUS
     Dosage: 10 MG ORAL
     Route: 048
     Dates: start: 20050215, end: 20050513
  2. CEFOPERAZONE/SULBACTAM [Suspect]
     Indication: VIRAL INFECTION
     Dates: start: 20050513, end: 20050515
  3. ANGIOTENSIN CONVERTING ENZYME INHIBITOR (NOS) [Concomitant]
  4. CEREBROVASCULAR [Concomitant]
  5. ASPIRIN [Concomitant]
  6. ZYLORIC TABLETS [Concomitant]
  7. BISOPROLOL FUMARATE [Concomitant]
  8. BENEXATE HYDROCHLORIDE CAPSULES [Concomitant]
  9. CILNIDIPINE TABLETS [Concomitant]
  10. MUCODYNE [Concomitant]
  11. MEDICON TABLETS [Concomitant]

REACTIONS (5)
  - EOSINOPHIL COUNT INCREASED [None]
  - LYMPHADENOPATHY MEDIASTINAL [None]
  - RASH [None]
  - STRIDOR [None]
  - THROMBOCYTOPENIA [None]
